FAERS Safety Report 19826420 (Version 1)
Quarter: 2021Q3

REPORT INFORMATION
  Report Type: Spontaneous
  Country: US (occurrence: US)
  Receive Date: 20210913
  Receipt Date: 20210913
  Transmission Date: 20211014
  Serious: No
  Sender: FDA-Public Use
  Company Number: None

PATIENT
  Age: 75 Year
  Sex: Male
  Weight: 124 kg

DRUGS (1)
  1. VICTOZA [Suspect]
     Active Substance: LIRAGLUTIDE
     Indication: DIABETES MELLITUS
     Dates: start: 20210411, end: 20210413

REACTIONS (6)
  - Abdominal pain [None]
  - Dizziness [None]
  - Nausea [None]
  - Asthenia [None]
  - Heart rate increased [None]
  - Vomiting [None]

NARRATIVE: CASE EVENT DATE: 20210413
